FAERS Safety Report 8936814 (Version 1)
Quarter: 2012Q4

REPORT INFORMATION
  Report Type: 
  Country: US (occurrence: US)
  Receive Date: 20121130
  Receipt Date: 20121130
  Transmission Date: 20130627
  Serious: No
  Sender: FDA-Public Use
  Company Number: US-VERTEX PHARMACEUTICAL INC.-2012-025117

PATIENT

DRUGS (4)
  1. INCIVEK [Suspect]
     Indication: HEPATITIS C
  2. RIBAVIRIN [Suspect]
     Indication: HEPATITIS C
  3. PEGINTERFERON ALFA-2A [Suspect]
     Indication: HEPATITIS C
  4. LEVOTHYROXINE                      /00068002/ [Concomitant]
     Indication: HYPOTHYROIDISM

REACTIONS (1)
  - Blood thyroid stimulating hormone increased [Recovered/Resolved]
